FAERS Safety Report 11071423 (Version 1)
Quarter: 2015Q2

REPORT INFORMATION
  Report Type: Spontaneous
  Country: US (occurrence: None)
  Receive Date: 20150424
  Receipt Date: 20150424
  Transmission Date: 20150821
  Serious: Yes (Other)
  Sender: FDA-Public Use
  Company Number: RAP-001002-2015

PATIENT
  Sex: Male

DRUGS (7)
  1. PROCYSBI DELAYED-RELEASE [Suspect]
     Active Substance: CYSTEAMINE BITARTRATE
     Indication: CYSTINOSIS
     Route: 048
     Dates: start: 201311
  2. CYSTAMINE [Concomitant]
  3. PARACETAMOL [Concomitant]
     Active Substance: ACETAMINOPHEN
  4. PEPCID [Concomitant]
     Active Substance: FAMOTIDINE
  5. ATENOLOL. [Concomitant]
     Active Substance: ATENOLOL
  6. PROGRAF [Concomitant]
     Active Substance: TACROLIMUS\TACROLIMUS ANHYDROUS
  7. MYCOPHENOLIC ACID. [Concomitant]
     Active Substance: MYCOPHENOLIC ACID

REACTIONS (7)
  - Off label use [None]
  - Amino acid level decreased [None]
  - Weight gain poor [None]
  - Decreased appetite [None]
  - Hair colour changes [None]
  - Blood potassium increased [None]
  - Diarrhoea [None]
